FAERS Safety Report 6662085-1 (Version None)
Quarter: 2010Q1

REPORT INFORMATION
  Report Type: 
  Country: None (occurrence: None)
  Receive Date: 20100331
  Receipt Date: 20100319
  Transmission Date: 20100710
  Serious: Yes (Other)
  Sender: FDA-Public Use
  Company Number: US-PFIZER INC-2010003717

PATIENT
  Sex: Male

DRUGS (1)
  1. SUTENT [Suspect]
     Indication: METASTATIC RENAL CELL CARCINOMA
     Dosage: 12.5 MG, 4X/DAY
     Route: 048

REACTIONS (9)
  - ABDOMINAL DISCOMFORT [None]
  - BLOOD CHOLESTEROL INCREASED [None]
  - CONDITION AGGRAVATED [None]
  - EPISTAXIS [None]
  - FEELING COLD [None]
  - GLUCOSE TOLERANCE IMPAIRED [None]
  - GOUT [None]
  - JOINT SWELLING [None]
  - SKIN DISCOLOURATION [None]
